FAERS Safety Report 11189558 (Version 1)
Quarter: 2015Q2

REPORT INFORMATION
  Report Type: Spontaneous
  Country: AT (occurrence: AT)
  Receive Date: 20150615
  Receipt Date: 20150615
  Transmission Date: 20150821
  Serious: Yes (Hospitalization)
  Sender: FDA-Public Use
  Company Number: AT-TEVA-570421ISR

PATIENT
  Age: 59 Year
  Sex: Male
  Weight: 78 kg

DRUGS (3)
  1. QUETIAPINE FUMARATE. [Suspect]
     Active Substance: QUETIAPINE FUMARATE
     Indication: MANIA
     Dosage: 1 DOSAGE FORMS DAILY; 300MG-400MG/D
     Dates: start: 2010
  2. BISOHEXAL [Concomitant]
     Active Substance: BISOPROLOL FUMARATE
     Dosage: 2.5 MILLIGRAM DAILY; 1/2 IN THE MORNING
     Route: 048
  3. GLIMEPIRIDE. [Concomitant]
     Active Substance: GLIMEPIRIDE
     Dosage: 2 MILLIGRAM DAILY; ONE IN THE MORNING
     Route: 048

REACTIONS (4)
  - Syncope [Recovered/Resolved]
  - Dizziness [Recovered/Resolved]
  - Weight decreased [Recovered/Resolved]
  - Transaminases increased [Recovered/Resolved]

NARRATIVE: CASE EVENT DATE: 201411
